FAERS Safety Report 7467366-X (Version None)
Quarter: 2011Q2

REPORT INFORMATION
  Report Type: 
  Country: None (occurrence: None)
  Receive Date: 20110509
  Receipt Date: 20101220
  Transmission Date: 20111010
  Serious: No
  Sender: FDA-Public Use
  Company Number: US-ALEXION-A201001637

PATIENT
  Sex: Female

DRUGS (6)
  1. BETAMETHASONE [Concomitant]
     Dosage: UNK
     Route: 061
  2. FOLIC ACID [Concomitant]
     Dosage: 0.4 MG, QD
     Route: 048
  3. ELIDEL [Concomitant]
     Dosage: UNK
     Route: 061
  4. COUMADIN [Concomitant]
     Dosage: UNK
     Route: 048
  5. SOLIRIS [Suspect]
     Indication: PAROXYSMAL NOCTURNAL HAEMOGLOBINURIA
     Dosage: 900 MG, Q2W
     Route: 042
  6. METRONIDAZOLE [Concomitant]
     Dosage: UNK
     Route: 061

REACTIONS (2)
  - NASAL CONGESTION [None]
  - ARTHRALGIA [None]
